FAERS Safety Report 16950446 (Version 1)
Quarter: 2019Q4

REPORT INFORMATION
  Report Type: Spontaneous
  Country: US (occurrence: US)
  Receive Date: 20191023
  Receipt Date: 20191023
  Transmission Date: 20200122
  Serious: Yes (Other)
  Sender: FDA-Public Use
  Company Number: US-AMGEN-USASP2019174418

PATIENT
  Age: 52 Year
  Sex: Male

DRUGS (4)
  1. ZARXIO [Concomitant]
     Active Substance: FILGRASTIM-SNDZ
     Indication: NEUTROPENIA
     Dosage: UNK
  2. ZARXIO [Concomitant]
     Active Substance: FILGRASTIM-SNDZ
     Indication: NEUTROPENIA
  3. NEULASTA [Suspect]
     Active Substance: PEGFILGRASTIM
     Indication: NEUTROPENIA
     Dosage: UNK
     Route: 065
  4. NEULASTA [Suspect]
     Active Substance: PEGFILGRASTIM
     Dosage: UNK
     Route: 065

REACTIONS (1)
  - Neutropenia [Unknown]

NARRATIVE: CASE EVENT DATE: 2019
